FAERS Safety Report 16771163 (Version 1)
Quarter: 2019Q3

REPORT INFORMATION
  Report Type: Spontaneous
  Country: GB (occurrence: GB)
  Receive Date: 20190904
  Receipt Date: 20190904
  Transmission Date: 20191005
  Serious: Yes (Hospitalization)
  Sender: FDA-Public Use
  Company Number: GB-TEVA-2019-GB-1100468

PATIENT
  Age: 69 Year
  Sex: Female

DRUGS (18)
  1. QUINIDINE SULFATE. [Concomitant]
     Active Substance: QUINIDINE SULFATE
     Dosage: 200 MG, IN THE MORNING.
     Route: 048
  2. BUDESONIDE AND FORMOTEROL FUMARATE [Concomitant]
     Active Substance: BUDESONIDE\FORMOTEROL FUMARATE
     Dosage: 4 DOSAGE FORMS, PUFFS. 200MICROGRAMS/DOSE / FORMOTEROL 6MICROGRAMS/DOSE
     Route: 055
  3. MORPHINE [Concomitant]
     Active Substance: MORPHINE
     Dosage: 30 MG, IN THE MORNING.
     Route: 048
  4. METFORMIN [Concomitant]
     Active Substance: METFORMIN HYDROCHLORIDE
     Dosage: 2 MG, IN MORNING
     Route: 048
  5. GLYCERYL TRINITRATE [Concomitant]
     Active Substance: NITROGLYCERIN
     Dosage: 400 MICROGRAM
     Route: 060
  6. IMIPRAMINE [Suspect]
     Active Substance: IMIPRAMINE
     Dosage: 20 MG, ONCE IN THE MORNING ONCE AT NIGHT.
     Route: 048
  7. EMPAGLIFLOZIN [Concomitant]
     Active Substance: EMPAGLIFLOZIN
     Dosage: 25 MG, IN THE MORNING.
     Route: 048
  8. FOLIC ACID. [Concomitant]
     Active Substance: FOLIC ACID
     Dosage: 5 MG, IN THE MORNING.
     Route: 048
  9. AMLODIPINE [Concomitant]
     Active Substance: AMLODIPINE BESYLATE
     Dosage: 10 MG, IN THE MORNING.
     Route: 048
  10. VENLAFAXINE [Suspect]
     Active Substance: VENLAFAXINE HYDROCHLORIDE
     Dosage: 37.5 MG, IN THE MORNING.
     Route: 048
  11. RIVAROXABAN [Concomitant]
     Active Substance: RIVAROXABAN
     Dosage: 20 MG, IN THE MORNING.
     Route: 048
  12. ATORVASTATIN [Suspect]
     Active Substance: ATORVASTATIN
     Dosage: 40 MG, AT NIGHT.
     Route: 048
  13. COMBODART [Concomitant]
     Active Substance: DUTASTERIDE\TAMSULOSIN
     Dosage: 1 DOSAGE FORMS, IN THE MORNING. 400MCG/500MCG
     Route: 048
  14. DICLOFENAC [Concomitant]
     Active Substance: DICLOFENAC
     Dosage: 1 DOSAGE FORMS, APPLY THREE TIMES PER DAY AS NEEDED.
     Route: 061
  15. PIOGLITAZONE. [Suspect]
     Active Substance: PIOGLITAZONE
     Dosage: 30 MG, IN THE MORNING.
     Route: 048
  16. BISOPROLOL [Concomitant]
     Active Substance: BISOPROLOL
     Dosage: 10 MG, IN THE MORNING.
     Route: 048
  17. OMEPRAZOLE. [Concomitant]
     Active Substance: OMEPRAZOLE
     Dosage: 20 MG, IN THE MORNING.
     Route: 048
  18. SALBUTAMOL [Concomitant]
     Active Substance: ALBUTEROL
     Dosage: 200 MICROGRAMS, PUFFS.
     Route: 050

REACTIONS (3)
  - Interstitial lung disease [Recovering/Resolving]
  - Dyspnoea [Unknown]
  - Left ventricular dysfunction [Not Recovered/Not Resolved]

NARRATIVE: CASE EVENT DATE: 20190416
